FAERS Safety Report 11419974 (Version 1)
Quarter: 2015Q3

REPORT INFORMATION
  Report Type: Spontaneous
  Country: US (occurrence: None)
  Receive Date: 20150825
  Receipt Date: 20150825
  Transmission Date: 20151125
  Serious: Yes (Hospitalization)
  Sender: FDA-Public Use
  Company Number: None

PATIENT
  Age: 47 Year
  Sex: Female
  Weight: 102.51 kg

DRUGS (3)
  1. PROPOFOL. [Suspect]
     Active Substance: PROPOFOL
     Indication: SEDATION
     Dates: start: 20150112, end: 20150112
  2. IRON [Concomitant]
     Active Substance: IRON
  3. MAGNESIUM CITRATE. [Suspect]
     Active Substance: MAGNESIUM CITRATE
     Indication: BOWEL PREPARATION
     Dates: start: 20150110, end: 20150111

REACTIONS (3)
  - Post procedural complication [None]
  - Diabetes insipidus [None]
  - Thirst [None]

NARRATIVE: CASE EVENT DATE: 20150112
